FAERS Safety Report 5915493-8 (Version None)
Quarter: 2008Q4

REPORT INFORMATION
  Report Type: 
  Country: None (occurrence: None)
  Receive Date: 20081010
  Receipt Date: 20081001
  Transmission Date: 20090506
  Serious: Yes (Other)
  Sender: FDA-Public Use
  Company Number: CA-ELI_LILLY_AND_COMPANY-CA200810000423

PATIENT
  Sex: Male

DRUGS (1)
  1. CYMBALTA [Suspect]

REACTIONS (2)
  - ARM AMPUTATION [None]
  - SUICIDE ATTEMPT [None]
